FAERS Safety Report 8254117-4 (Version None)
Quarter: 2012Q2

REPORT INFORMATION
  Report Type: 
  Country: None (occurrence: None)
  Receive Date: 20120402
  Receipt Date: 20120320
  Transmission Date: 20120825
  Serious: No
  Sender: FDA-Public Use
  Company Number: US-AMGEN-USASP2012017994

PATIENT
  Age: 58 Year
  Sex: Female

DRUGS (1)
  1. ENBREL [Suspect]
     Indication: RHEUMATOID ARTHRITIS
     Dosage: 50 MG, QWK
     Dates: start: 20110923

REACTIONS (8)
  - HEADACHE [None]
  - CHROMATURIA [None]
  - BODY TEMPERATURE INCREASED [None]
  - NAUSEA [None]
  - BLADDER PAIN [None]
  - INJECTION SITE PAIN [None]
  - DIZZINESS [None]
  - URINE ANALYSIS ABNORMAL [None]
